FAERS Safety Report 8267110-2 (Version None)
Quarter: 2012Q2

REPORT INFORMATION
  Report Type: 
  Country: None (occurrence: None)
  Receive Date: 20120409
  Receipt Date: 20120328
  Transmission Date: 20120825
  Serious: Yes (Other)
  Sender: FDA-Public Use
  Company Number: JP-CELGENEUS-087-21880-11093554

PATIENT
  Sex: Female

DRUGS (7)
  1. REVLIMID [Suspect]
     Dosage: 10 MILLIGRAM
     Route: 048
     Dates: start: 20101123, end: 20101129
  2. DEXAMETHASONE ACETATE [Suspect]
     Dosage: 12 MILLIGRAM
     Route: 048
     Dates: start: 20101206, end: 20101226
  3. REVLIMID [Suspect]
     Dosage: 10 MILLIGRAM
     Route: 048
     Dates: start: 20101206, end: 20101226
  4. COTRIM [Concomitant]
     Indication: PROPHYLAXIS
     Dosage: 1 GRAM
     Route: 048
     Dates: start: 20101123, end: 20101129
  5. REVLIMID [Suspect]
     Indication: MULTIPLE MYELOMA
     Dosage: 10 MILLIGRAM
     Route: 048
     Dates: start: 20101006, end: 20101026
  6. DEXAMETHASONE ACETATE [Suspect]
     Dosage: 12 MILLIGRAM
     Route: 048
     Dates: start: 20101123, end: 20101125
  7. DEXAMETHASONE ACETATE [Suspect]
     Indication: MULTIPLE MYELOMA
     Dosage: 12 MILLIGRAM
     Route: 048
     Dates: start: 20101006, end: 20101022

REACTIONS (3)
  - RESPIRATORY DISORDER [None]
  - STOMATITIS [None]
  - THROMBOCYTOPENIA [None]
